FAERS Safety Report 20592051 (Version 2)
Quarter: 2022Q1

REPORT INFORMATION
  Report Type: Spontaneous
  Country: DE (occurrence: None)
  Receive Date: 20220314
  Receipt Date: 20220322
  Transmission Date: 20220423
  Serious: Yes (Hospitalization, Other)
  Sender: FDA-Public Use
  Company Number: 2022A108084

PATIENT
  Age: 4088 Week
  Sex: Male
  Weight: 95 kg

DRUGS (1)
  1. CALQUENCE [Suspect]
     Active Substance: ACALABRUTINIB
     Indication: Chronic lymphocytic leukaemia
     Route: 048
     Dates: start: 20220103

REACTIONS (4)
  - White blood cell count increased [Recovering/Resolving]
  - Leukostasis syndrome [Recovered/Resolved]
  - Peripheral embolism [Recovered/Resolved]
  - Extremity necrosis [Recovered/Resolved]

NARRATIVE: CASE EVENT DATE: 20220128
